FAERS Safety Report 15413500 (Version 1)
Quarter: 2018Q3

REPORT INFORMATION
  Report Type: Report from Study
  Country: US (occurrence: US)
  Receive Date: 20180921
  Receipt Date: 20180921
  Transmission Date: 20181010
  Serious: Yes (Other)
  Sender: FDA-Public Use
  Company Number: US-JNJFOC-20180922563

PATIENT
  Sex: Male

DRUGS (22)
  1. IMBRUVICA [Suspect]
     Active Substance: IBRUTINIB
     Indication: CHRONIC LYMPHOCYTIC LEUKAEMIA
     Route: 048
     Dates: start: 20180712
  2. OMEPRAZOLE. [Concomitant]
     Active Substance: OMEPRAZOLE
  3. ASPIRIN. [Concomitant]
     Active Substance: ASPIRIN
  4. NORCO [Concomitant]
     Active Substance: ACETAMINOPHEN\HYDROCODONE BITARTRATE
     Route: 065
  5. BUPROPION. [Concomitant]
     Active Substance: BUPROPION
  6. BUSPIRONE [Concomitant]
     Active Substance: BUSPIRONE HYDROCHLORIDE
  7. ALBUTEROL SULFATE. [Concomitant]
     Active Substance: ALBUTEROL SULFATE
  8. GUAIFENESIN. [Concomitant]
     Active Substance: GUAIFENESIN
  9. PREDNISONE. [Concomitant]
     Active Substance: PREDNISONE
  10. CARBIDOPA W/LEVODOPA [Concomitant]
     Active Substance: CARBIDOPA\LEVODOPA
  11. DONEPEZIL. [Concomitant]
     Active Substance: DONEPEZIL
  12. CALCIUM CARBONATE. [Concomitant]
     Active Substance: CALCIUM CARBONATE
  13. LINUM USITATISSIMUM SEED OIL [Concomitant]
  14. MULTIVITAMINS [Concomitant]
     Active Substance: VITAMINS
  15. FLUCONAZOLE. [Concomitant]
     Active Substance: FLUCONAZOLE
  16. DILTIAZEM. [Concomitant]
     Active Substance: DILTIAZEM
  17. ALPRAZOLAM. [Concomitant]
     Active Substance: ALPRAZOLAM
  18. MYRBETRIQ [Concomitant]
     Active Substance: MIRABEGRON
  19. LUTEIN [Concomitant]
     Active Substance: LUTEIN
  20. LEVOTHYROXINE. [Concomitant]
     Active Substance: LEVOTHYROXINE
  21. TRAZODONE [Concomitant]
     Active Substance: TRAZODONE HYDROCHLORIDE
  22. IPRATROPIUM [Concomitant]
     Active Substance: IPRATROPIUM

REACTIONS (1)
  - Platelet count decreased [Unknown]
